FAERS Safety Report 24645680 (Version 1)
Quarter: 2024Q4

REPORT INFORMATION
  Report Type: Spontaneous
  Country: US (occurrence: US)
  Receive Date: 20241121
  Receipt Date: 20241121
  Transmission Date: 20250114
  Serious: Yes (Life-Threatening, Hospitalization, Other)
  Sender: HIKMA
  Company Number: US-MLMSERVICE-20241104-PI250024-00206-1

PATIENT
  Age: 24 Year
  Sex: Female

DRUGS (4)
  1. ADENOSINE [Suspect]
     Active Substance: ADENOSINE
     Indication: Heart rate increased
     Dosage: 10 MILLIGRAM
     Route: 065
  2. ADENOSINE [Suspect]
     Active Substance: ADENOSINE
     Indication: Hypertension
     Dosage: 5 MILLIGRAM
     Route: 065
  3. LORAZEPAM [Suspect]
     Active Substance: LORAZEPAM
     Indication: Nausea
     Dosage: UNKNOWN
     Route: 065
  4. NALBUPHINE HYDROCHLORIDE [Suspect]
     Active Substance: NALBUPHINE HYDROCHLORIDE
     Indication: Abdominal pain
     Dosage: UNKNOWN
     Route: 065

REACTIONS (2)
  - Cardiac perfusion defect [Unknown]
  - Mental status changes [Unknown]
